FAERS Safety Report 6053924-6 (Version None)
Quarter: 2009Q1

REPORT INFORMATION
  Report Type: 
  Country: None (occurrence: None)
  Receive Date: 20090127
  Receipt Date: 20090119
  Transmission Date: 20090719
  Serious: Yes (Disabling)
  Sender: FDA-Public Use
  Company Number: JP-ASTRAZENECA-2008AP09869

PATIENT
  Age: 49 Year
  Sex: Female
  Weight: 57 kg

DRUGS (4)
  1. NAROPIN [Suspect]
     Indication: EPIDURAL ANAESTHESIA
     Dosage: ADMINISTERED AT 4ML/H.
     Route: 008
  2. NAROPIN [Suspect]
     Dosage: MIXED WITH 3 MICG/ML OF FENTANYL AND ADMINISTERED CONTINUOUSLY AT 4 ML/H.
     Route: 008
  3. CARBOCAIN [Suspect]
     Indication: EPIDURAL ANAESTHESIA
     Dosage: 30MG WAS ADMINISTERED AS A TEST DOSE AND ADMINISTERED AT 4ML/H FOR 3 HOURS DURING THE SURGERY.
     Route: 008
  4. FENTANYL CITRATE [Concomitant]
     Indication: ANALGESIA
     Dosage: MIXED WITH 3 MICG/ML OF 0.2% ROPIVACAINE AND ADMINISTERED CONTINUOUSLY AT 4 ML/H.
     Route: 008

REACTIONS (2)
  - HYPOAESTHESIA [None]
  - MUSCULAR WEAKNESS [None]
